FAERS Safety Report 8951213 (Version 1)
Quarter: 2012Q4

REPORT INFORMATION
  Report Type: Spontaneous
  Country: US (occurrence: None)
  Receive Date: 20121129
  Receipt Date: 20121129
  Transmission Date: 20130627
  Serious: Yes (Life-Threatening, Hospitalization)
  Sender: FDA-Public Use
  Company Number: NSR_00723_2012

PATIENT
  Age: 51 Year
  Sex: Female

DRUGS (7)
  1. BACLOFEN [Suspect]
     Indication: PRODUCT USED FOR UNKNOWN INDICATION
  2. CLORAZEPATE [Concomitant]
  3. HYDROXYZINE [Concomitant]
  4. PAROXETINE [Concomitant]
  5. PHENOBARBITAL [Concomitant]
  6. DIGOXIN [Concomitant]
  7. WARFARIN [Concomitant]

REACTIONS (6)
  - Suicide attempt [None]
  - Unresponsive to stimuli [None]
  - Pupil fixed [None]
  - Brain injury [None]
  - Drug level increased [None]
  - Blood pressure systolic decreased [None]
